FAERS Safety Report 8798634 (Version 1)
Quarter: 2012Q4

REPORT INFORMATION
  Report Type: 
  Country: GB (occurrence: GB)
  Receive Date: 20120920
  Receipt Date: 20120920
  Transmission Date: 20130627
  Serious: Yes (Disabling)
  Sender: FDA-Public Use
  Company Number: GB-PFIZER INC-2012229220

PATIENT
  Age: 34 Year
  Sex: Female
  Weight: 57.15 kg

DRUGS (3)
  1. GABAPENTIN [Suspect]
     Indication: NEURALGIA
     Dosage: 300 mg, 3x/day
     Route: 048
     Dates: start: 20120830
  2. ST. JOHN^S WORT [Concomitant]
  3. LORATADINE [Concomitant]

REACTIONS (4)
  - Feeling drunk [Unknown]
  - Constipation [Unknown]
  - Hypoaesthesia oral [Recovering/Resolving]
  - Disturbance in attention [Unknown]
